FAERS Safety Report 9852761 (Version 1)
Quarter: 2014Q1

REPORT INFORMATION
  Report Type: Spontaneous
  Country: US (occurrence: None)
  Receive Date: 20140127
  Receipt Date: 20140127
  Transmission Date: 20141002
  Serious: No
  Sender: FDA-Public Use
  Company Number: 2014P1000328

PATIENT
  Age: 21 Year
  Sex: Female

DRUGS (1)
  1. OXYCODONE [Suspect]

REACTIONS (15)
  - Intentional drug misuse [None]
  - Wrong technique in drug usage process [None]
  - Wrong technique in drug usage process [None]
  - Ecchymosis [None]
  - Local swelling [None]
  - Joint range of motion decreased [None]
  - Muscle contusion [None]
  - Haematoma [None]
  - Muscle strain [None]
  - Upper limb fracture [None]
  - Culture wound positive [None]
  - Streptococcal infection [None]
  - Bacterial infection [None]
  - Abscess [None]
  - Necrotising fasciitis [None]
